FAERS Safety Report 7705833-1 (Version None)
Quarter: 2011Q3

REPORT INFORMATION
  Report Type: 
  Country: None (occurrence: None)
  Receive Date: 20110824
  Receipt Date: 20110815
  Transmission Date: 20111222
  Serious: Yes (Other)
  Sender: FDA-Public Use
  Company Number: CA-ELI_LILLY_AND_COMPANY-CA201108004615

PATIENT
  Sex: Female
  Weight: 111 kg

DRUGS (15)
  1. ZYPREXA ZYDIS [Suspect]
     Dosage: 5 MG, UNK
  2. ZYPREXA [Suspect]
     Dosage: 20 MG, EACH EVENING
  3. ZYPREXA [Suspect]
     Dosage: 10 MG, QD
  4. ZYPREXA ZYDIS [Suspect]
     Indication: SCHIZOAFFECTIVE DISORDER
     Dosage: 35 MG, QD
  5. HALDOL [Concomitant]
  6. ZYPREXA [Suspect]
     Indication: SCHIZOAFFECTIVE DISORDER
     Dosage: 1 DF, BID
  7. SEROQUEL [Concomitant]
  8. ZYPREXA ZYDIS [Suspect]
     Dosage: 10 MG, UNKNOWN
  9. TEMAZEPAM [Concomitant]
  10. ZYPREXA ZYDIS [Suspect]
     Dosage: 15 MG, UNKNOWN
  11. EFFEXOR [Concomitant]
  12. VALPROATE SODIUM [Concomitant]
  13. LORAZEPAM [Concomitant]
  14. RISPERDAL [Concomitant]
  15. VALPROIC ACID [Concomitant]

REACTIONS (18)
  - CATARACT [None]
  - DIABETES MELLITUS [None]
  - HYPERTENSION [None]
  - HEPATIC STEATOSIS [None]
  - ASPARTATE AMINOTRANSFERASE INCREASED [None]
  - HYPERCHOLESTEROLAEMIA [None]
  - AORTIC ARTERIOSCLEROSIS [None]
  - CARDIAC MURMUR [None]
  - METABOLIC SYNDROME [None]
  - NEUROPATHY PERIPHERAL [None]
  - HEPATOSPLENOMEGALY [None]
  - PNEUMONIA [None]
  - WEIGHT INCREASED [None]
  - OEDEMA PERIPHERAL [None]
  - HYPERTRIGLYCERIDAEMIA [None]
  - MYOCARDIAL ISCHAEMIA [None]
  - INTERMITTENT CLAUDICATION [None]
  - OVERDOSE [None]
